FAERS Safety Report 24392168 (Version 1)
Quarter: 2024Q4

REPORT INFORMATION
  Report Type: Spontaneous
  Country: FR (occurrence: FR)
  Receive Date: 20241003
  Receipt Date: 20241003
  Transmission Date: 20250114
  Serious: Yes (Death, Hospitalization, Other)
  Sender: MERCK
  Company Number: None

PATIENT
  Age: 83 Year
  Sex: Male
  Weight: 84.4 kg

DRUGS (1)
  1. KEYTRUDA [Suspect]
     Active Substance: PEMBROLIZUMAB
     Indication: Squamous cell carcinoma
     Dosage: 200 MILLIGRAM, ONCE
     Route: 042
     Dates: start: 20240416, end: 20240416

REACTIONS (3)
  - Capillary leak syndrome [Fatal]
  - Cytokine release syndrome [Fatal]
  - Haemophagocytic lymphohistiocytosis [Fatal]

NARRATIVE: CASE EVENT DATE: 20240417
